FAERS Safety Report 8242373-8 (Version None)
Quarter: 2012Q1

REPORT INFORMATION
  Report Type: 
  Country: None (occurrence: None)
  Receive Date: 20120329
  Receipt Date: 20120321
  Transmission Date: 20120608
  Serious: Yes (Other)
  Sender: FDA-Public Use
  Company Number: US-BAYER-2012-028019

PATIENT
  Age: 43 Year
  Sex: Female

DRUGS (1)
  1. MIRENA [Suspect]
     Indication: CONTRACEPTION
     Dosage: 20 MCG/24HR, CONT
     Route: 015
     Dates: start: 20110811, end: 20111001

REACTIONS (5)
  - MALAISE [None]
  - MEDICAL DEVICE DISCOMFORT [None]
  - DYSPAREUNIA [None]
  - DISCOMFORT [None]
  - POST PROCEDURAL HAEMORRHAGE [None]
